FAERS Safety Report 13112650 (Version 1)
Quarter: 2017Q1

REPORT INFORMATION
  Report Type: Spontaneous
  Country: US (occurrence: US)
  Receive Date: 20170112
  Receipt Date: 20170112
  Transmission Date: 20170428
  Serious: No
  Sender: FDA-Public Use
  Company Number: None

PATIENT
  Age: 45 Year
  Sex: Female

DRUGS (1)
  1. HUMIRA [Suspect]
     Active Substance: ADALIMUMAB
     Indication: CROHN^S DISEASE
     Route: 058
     Dates: start: 20160728, end: 20170109

REACTIONS (5)
  - Swelling face [None]
  - Pruritus [None]
  - Lip swelling [None]
  - Rash erythematous [None]
  - Dyspnoea [None]

NARRATIVE: CASE EVENT DATE: 20170109
